FAERS Safety Report 9833103 (Version 1)
Quarter: 2014Q1

REPORT INFORMATION
  Report Type: Spontaneous
  Country: FR (occurrence: FR)
  Receive Date: 20140121
  Receipt Date: 20140121
  Transmission Date: 20141002
  Serious: Yes (Other)
  Sender: FDA-Public Use
  Company Number: FR-PFIZER INC-2014016708

PATIENT
  Age: 88 Year
  Sex: Female

DRUGS (1)
  1. EFFEXOR LP [Suspect]
     Dosage: 37.5 MG, 2X/DAY

REACTIONS (1)
  - Parkinson^s disease [Unknown]
